FAERS Safety Report 9856829 (Version 1)
Quarter: 2014Q1

REPORT INFORMATION
  Report Type: Spontaneous
  Country: ES (occurrence: ES)
  Receive Date: 20140130
  Receipt Date: 20140130
  Transmission Date: 20141002
  Serious: Yes (Other)
  Sender: FDA-Public Use
  Company Number: PHHY2014ES008781

PATIENT
  Age: 28 Year
  Sex: Male

DRUGS (6)
  1. ARIPIPRAZOLE [Suspect]
     Dosage: 10 MG, UNK
  2. FLUOXETINE [Interacting]
     Dosage: 60 MG/DAY
  3. FLUOXETINE [Interacting]
     Dosage: 40 MG/DAY
  4. TOPIRAMATE [Suspect]
     Dosage: 100 MG, UNK
  5. TOPIRAMATE [Suspect]
     Dosage: 150 MG, UNK
  6. BETA BLOCKING AGENTS [Concomitant]

REACTIONS (5)
  - Ventricular arrhythmia [Unknown]
  - Ventricular tachycardia [Unknown]
  - Drug interaction [Unknown]
  - Eating disorder [Unknown]
  - Social avoidant behaviour [Unknown]
